FAERS Safety Report 6272923-2 (Version None)
Quarter: 2009Q3

REPORT INFORMATION
  Report Type: 
  Country: None (occurrence: None)
  Receive Date: 20090717
  Receipt Date: 20090709
  Transmission Date: 20100115
  Serious: Yes (Other)
  Sender: FDA-Public Use
  Company Number: US-PFIZER INC-2009238978

PATIENT
  Sex: Male
  Weight: 90.718 kg

DRUGS (1)
  1. LIPITOR [Suspect]

REACTIONS (3)
  - ARTERIAL OCCLUSIVE DISEASE [None]
  - HIGH DENSITY LIPOPROTEIN DECREASED [None]
  - NEUROPATHY PERIPHERAL [None]
